FAERS Safety Report 11915303 (Version 5)
Quarter: 2016Q2

REPORT INFORMATION
  Report Type: Spontaneous
  Country: US (occurrence: US)
  Receive Date: 20160114
  Receipt Date: 20160422
  Transmission Date: 20160815
  Serious: Yes (Other)
  Sender: FDA-Public Use
  Company Number: US-009507513-1601USA003684

PATIENT
  Age: 79 Year
  Sex: Female

DRUGS (7)
  1. KEYTRUDA [Suspect]
     Active Substance: PEMBROLIZUMAB
     Indication: MALIGNANT MELANOMA
     Dosage: UNK, Q3W
     Route: 042
     Dates: start: 20151102, end: 20151102
  2. CLONIDINE. [Concomitant]
     Active Substance: CLONIDINE
  3. PREMARIN [Concomitant]
     Active Substance: ESTROGENS, CONJUGATED
  4. BENICAR [Concomitant]
     Active Substance: OLMESARTAN MEDOXOMIL
  5. KEYTRUDA [Suspect]
     Active Substance: PEMBROLIZUMAB
     Dosage: UNK, Q3W
     Route: 042
     Dates: start: 20151130, end: 201603
  6. ATENOLOL. [Concomitant]
     Active Substance: ATENOLOL
  7. SYNTHROID [Concomitant]
     Active Substance: LEVOTHYROXINE SODIUM

REACTIONS (12)
  - Impaired healing [Unknown]
  - Colitis [Not Recovered/Not Resolved]
  - Alopecia [Recovering/Resolving]
  - Dehydration [Not Recovered/Not Resolved]
  - Lung disorder [Not Recovered/Not Resolved]
  - Fatigue [Recovering/Resolving]
  - Rash [Unknown]
  - Osteopenia [Unknown]
  - Pain [Unknown]
  - Myalgia [Unknown]
  - Lumbar vertebral fracture [Not Recovered/Not Resolved]
  - Constipation [Unknown]

NARRATIVE: CASE EVENT DATE: 201511
